FAERS Safety Report 8565090-3 (Version None)
Quarter: 2012Q3

REPORT INFORMATION
  Report Type: 
  Country: None (occurrence: None)
  Receive Date: 20120803
  Receipt Date: 20120726
  Transmission Date: 20120928
  Serious: Yes (Hospitalization)
  Sender: FDA-Public Use
  Company Number: JP-VERTEX PHARMACEUTICALS INC.-AE-2012-009143

PATIENT
  Age: 68 Year
  Sex: Male

DRUGS (9)
  1. TELAVIC (TELAPREVIR) [Suspect]
     Indication: HEPATITIS C
     Route: 048
     Dates: start: 20120305
  2. PEGINTERFERON ALFA-2B [Concomitant]
     Route: 058
     Dates: start: 20120509
  3. MUCOSTA [Concomitant]
     Route: 048
     Dates: start: 20120305, end: 20120305
  4. REBETOL [Concomitant]
     Route: 048
     Dates: start: 20120314
  5. LOXONIN [Concomitant]
     Route: 048
     Dates: start: 20120305, end: 20120305
  6. REBETOL [Concomitant]
     Indication: HEPATITIS C
     Route: 048
     Dates: start: 20120305, end: 20120313
  7. ZETIA [Concomitant]
     Route: 048
     Dates: start: 20120321
  8. PEGINTERFERON ALFA-2B [Concomitant]
     Indication: HEPATITIS C
     Route: 058
     Dates: start: 20120305, end: 20120425
  9. URSO 250 [Concomitant]
     Route: 048

REACTIONS (1)
  - PNEUMONIA [None]
